FAERS Safety Report 5931157-9 (Version None)
Quarter: 2008Q4

REPORT INFORMATION
  Report Type: 
  Country: None (occurrence: None)
  Receive Date: 20081027
  Receipt Date: 20081017
  Transmission Date: 20090506
  Serious: Yes (Other)
  Sender: FDA-Public Use
  Company Number: PHHY2008AU24918

PATIENT
  Sex: Female

DRUGS (2)
  1. COMBIPATCH [Suspect]
     Indication: HORMONE REPLACEMENT THERAPY
     Dosage: TWICE A WEEK
     Route: 062
     Dates: start: 20060101
  2. LEVOTHYROXINE SODIUM [Suspect]
     Indication: THYROID DISORDER
     Dosage: UNK

REACTIONS (3)
  - DEVICE INEFFECTIVE [None]
  - GOITRE [None]
  - PRODUCT QUALITY ISSUE [None]
